FAERS Safety Report 6917822-5 (Version None)
Quarter: 2010Q3

REPORT INFORMATION
  Report Type: 
  Country: None (occurrence: None)
  Receive Date: 20100806
  Receipt Date: 20100728
  Transmission Date: 20110219
  Serious: Yes (Other)
  Sender: FDA-Public Use
  Company Number: DSA_43387_2010

PATIENT
  Sex: Male

DRUGS (2)
  1. ELONTRI (ELONTRIL - BUPROPION HYDROCHLORIDE EXTENDED RELEASE) 150 MG ( [Suspect]
     Indication: PRODUCT USED FOR UNKNOWN INDICATION
     Dosage: (3750 MG 1X, NOT THE PRESCRIBED AMOUNT ORAL)
     Route: 048
     Dates: start: 20100626, end: 20100626
  2. ETHANOL (ETHANOL) [Suspect]
     Indication: PRODUCT USED FOR UNKNOWN INDICATION
     Dosage: (AMOUNT UNKNOWN ORAL)
     Route: 048
     Dates: start: 20100626

REACTIONS (10)
  - AGGRESSION [None]
  - ALCOHOL USE [None]
  - CONVULSION [None]
  - DIZZINESS [None]
  - FEELING ABNORMAL [None]
  - GASTROINTESTINAL SOUNDS ABNORMAL [None]
  - INTENTIONAL OVERDOSE [None]
  - SUICIDE ATTEMPT [None]
  - TACHYCARDIA [None]
  - VOMITING [None]
